FAERS Safety Report 4511876-1 (Version None)
Quarter: 2004Q4

REPORT INFORMATION
  Report Type: 
  Country: None (occurrence: None)
  Receive Date: 20041129
  Receipt Date: 20041116
  Transmission Date: 20050328
  Serious: Yes (Other)
  Sender: FDA-Public Use
  Company Number: DE-JNJFOC-20041104639

PATIENT
  Sex: Female
  Weight: 90 kg

DRUGS (2)
  1. RISPERDAL [Suspect]
     Route: 049
  2. NEUROCIL [Suspect]
     Route: 049

REACTIONS (2)
  - ORTHOSTATIC HYPOTENSION [None]
  - SINUS BRADYCARDIA [None]
